FAERS Safety Report 16897253 (Version 1)
Quarter: 2019Q4

REPORT INFORMATION
  Report Type: Report from Study
  Country: US (occurrence: US)
  Receive Date: 20191009
  Receipt Date: 20191009
  Transmission Date: 20200122
  Serious: Yes (Other)
  Sender: FDA-Public Use
  Company Number: US-ROCHE-2428692

PATIENT
  Age: 70 Year
  Sex: Female

DRUGS (1)
  1. ATEZOLIZUMAB. [Suspect]
     Active Substance: ATEZOLIZUMAB
     Indication: CHOLANGIOCARCINOMA
     Route: 042

REACTIONS (1)
  - Headache [Unknown]
